FAERS Safety Report 21523999 (Version 1)
Quarter: 2022Q4

REPORT INFORMATION
  Report Type: Spontaneous
  Country: US (occurrence: US)
  Receive Date: 20221029
  Receipt Date: 20221029
  Transmission Date: 20230112
  Serious: No
  Sender: FDA-Public Use
  Company Number: US-SA-SAC20221020001678

PATIENT
  Sex: Female

DRUGS (10)
  1. DUPIXENT [Suspect]
     Active Substance: DUPILUMAB
     Indication: Dermatitis atopic
     Dosage: 300 MG, QOW
     Route: 058
  2. ALLOPURINOL [Concomitant]
     Active Substance: ALLOPURINOL
  3. DIAZEPAM [Concomitant]
     Active Substance: DIAZEPAM
  4. FLUCONAZOLE [Concomitant]
     Active Substance: FLUCONAZOLE
  5. GABAPENTIN [Concomitant]
     Active Substance: GABAPENTIN
  6. NEXIUM [Concomitant]
     Active Substance: ESOMEPRAZOLE MAGNESIUM
  7. OXYCODONE [Concomitant]
     Active Substance: OXYCODONE
  8. TOPIRAMATE [Concomitant]
     Active Substance: TOPIRAMATE
  9. WELLBUTRIN [Concomitant]
     Active Substance: BUPROPION HYDROCHLORIDE
  10. LEVOCETIRIZINE [Concomitant]
     Active Substance: LEVOCETIRIZINE

REACTIONS (1)
  - Urinary tract infection [Unknown]
